FAERS Safety Report 5867614-3 (Version None)
Quarter: 2008Q3

REPORT INFORMATION
  Report Type: 
  Country: None (occurrence: None)
  Receive Date: 20080902
  Receipt Date: 20071214
  Transmission Date: 20090109
  Serious: No
  Sender: FDA-Public Use
  Company Number: US-ABBOTT-07P-163-0430564-00

PATIENT
  Sex: Female
  Weight: 52.21 kg

DRUGS (8)
  1. DEPAKOTE ER [Suspect]
     Indication: BIPOLAR DISORDER
     Route: 048
     Dates: start: 20071210, end: 20071212
  2. DEPAKOTE ER [Suspect]
     Route: 048
     Dates: start: 20071212, end: 20071213
  3. DEPAKOTE ER [Suspect]
     Route: 048
     Dates: start: 20071213, end: 20071215
  4. DEPAKOTE ER [Suspect]
     Route: 048
     Dates: start: 20071215
  5. LITHIUM CARBONATE [Concomitant]
     Indication: DRUG USE FOR UNKNOWN INDICATION
  6. LAMOTRIGINE [Concomitant]
     Indication: DRUG USE FOR UNKNOWN INDICATION
  7. QUETIAPINE [Concomitant]
     Indication: DRUG USE FOR UNKNOWN INDICATION
  8. OXCARBAZEPINE [Concomitant]
     Indication: DRUG USE FOR UNKNOWN INDICATION

REACTIONS (4)
  - AMNESIA [None]
  - ASTHENIA [None]
  - COGNITIVE DISORDER [None]
  - NAUSEA [None]
